FAERS Safety Report 6022000-0 (Version None)
Quarter: 2008Q4

REPORT INFORMATION
  Report Type: 
  Country: None (occurrence: None)
  Receive Date: 20081223
  Receipt Date: 20081218
  Transmission Date: 20090506
  Serious: Yes (Death)
  Sender: FDA-Public Use
  Company Number: 1000003238

PATIENT
  Sex: Female

DRUGS (3)
  1. LEXAPRO [Suspect]
  2. ATIVAN [Suspect]
  3. ALCOHOL [Suspect]

REACTIONS (1)
  - DEATH [None]
